FAERS Safety Report 4342619-2 (Version None)
Quarter: 2004Q2

REPORT INFORMATION
  Report Type: 
  Country: None (occurrence: None)
  Receive Date: 20040421
  Receipt Date: 20040415
  Transmission Date: 20050107
  Serious: Yes (Other)
  Sender: FDA-Public Use
  Company Number: 200412917US

PATIENT
  Sex: 0

DRUGS (4)
  1. ALLEGRA [Suspect]
     Dosage: DOSE: NOT PROVIDED
  2. CLARITIN [Concomitant]
     Dosage: DOSE: NOT PROVIDED
  3. PAXIL [Concomitant]
  4. SEROQUEL [Concomitant]

REACTIONS (1)
  - CONVULSION [None]
